FAERS Safety Report 11279842 (Version 2)
Quarter: 2015Q3

REPORT INFORMATION
  Report Type: Report from Study
  Country: JP (occurrence: JP)
  Receive Date: 20150717
  Receipt Date: 20150813
  Transmission Date: 20151125
  Serious: Yes (Other)
  Sender: FDA-Public Use
  Company Number: JP-009507513-1507JPN007665

PATIENT

DRUGS (5)
  1. REBETOL [Suspect]
     Active Substance: RIBAVIRIN
     Dosage: 1000 MG, QD BODY WEIGHT }80 KG
  2. REBETOL [Suspect]
     Active Substance: RIBAVIRIN
     Dosage: 800 MG, QD BODY WEIGHT }60 KG TO {=80 KG
  3. TELAPREVIR [Suspect]
     Active Substance: TELAPREVIR
     Indication: CHRONIC HEPATITIS C
     Dosage: 750 MG, Q8H AFTER FOOD
  4. PEGINTRON [Suspect]
     Active Substance: PEGINTERFERON ALFA-2B
     Indication: HEPATITIS C VIRUS TEST POSITIVE
     Dosage: 1.5 MICROGRAM/KG WEEKLY
     Route: 058
  5. REBETOL [Suspect]
     Active Substance: RIBAVIRIN
     Indication: CHRONIC HEPATITIS C
     Dosage: 600 MG, QD BODY WEIGHT {=60 KG
     Route: 048

REACTIONS (1)
  - Skin disorder [Unknown]
